FAERS Safety Report 17646116 (Version 5)
Quarter: 2020Q2

REPORT INFORMATION
  Report Type: Spontaneous
  Country: US (occurrence: US)
  Receive Date: 20200408
  Receipt Date: 20200520
  Transmission Date: 20200713
  Serious: No
  Sender: FDA-Public Use
  Company Number: US-SA-2020SA088525

PATIENT
  Sex: Female

DRUGS (1)
  1. DUPIXENT [Suspect]
     Active Substance: DUPILUMAB
     Indication: ASTHMA
     Dosage: 300 MG, QOW
     Route: 058

REACTIONS (11)
  - Decreased appetite [Unknown]
  - Feeling abnormal [Unknown]
  - Product use issue [Unknown]
  - Headache [Unknown]
  - Palpitations [Unknown]
  - Cough [Unknown]
  - Ageusia [Unknown]
  - Drug ineffective [Unknown]
  - Weight decreased [Unknown]
  - Feeding disorder [Unknown]
  - Dizziness [Unknown]
